FAERS Safety Report 8972273 (Version 2)
Quarter: 2013Q1

REPORT INFORMATION
  Report Type: Spontaneous
  Country: PT (occurrence: PT)
  Receive Date: 20121219
  Receipt Date: 20130124
  Transmission Date: 20140127
  Serious: Yes (Hospitalization, Other)
  Sender: FDA-Public Use
  Company Number: PT-JNJFOC-20121205338

PATIENT
  Age: 61 Year
  Sex: Male

DRUGS (6)
  1. REMICADE [Suspect]
     Indication: PSORIATIC ARTHROPATHY
     Dosage: 2 YEARS PRIOR TO THE DAY OF REPORT
     Route: 042
     Dates: start: 200907
  2. REMICADE [Suspect]
     Indication: PSORIATIC ARTHROPATHY
     Route: 042
     Dates: start: 20121205
  3. REMICADE [Suspect]
     Indication: PSORIASIS
     Route: 042
     Dates: start: 20121205
  4. REMICADE [Suspect]
     Indication: PSORIASIS
     Dosage: 2 YEARS PRIOR TO THE DAY OF REPORT
     Route: 042
     Dates: start: 200907
  5. METHOTREXATE [Concomitant]
     Indication: PSORIATIC ARTHROPATHY
     Route: 065
     Dates: start: 201003
  6. METHOTREXATE [Concomitant]
     Indication: PSORIATIC ARTHROPATHY
     Dosage: 3 TABLETS/WEEK
     Route: 065
     Dates: start: 20121227

REACTIONS (4)
  - Psoriatic arthropathy [Not Recovered/Not Resolved]
  - Crystal urine present [Unknown]
  - Tubulointerstitial nephritis [Unknown]
  - Tendonitis [Unknown]
